FAERS Safety Report 20231129 (Version 1)
Quarter: 2021Q4

REPORT INFORMATION
  Report Type: Spontaneous
  Country: US (occurrence: US)
  Receive Date: 20211227
  Receipt Date: 20211227
  Transmission Date: 20220303
  Serious: Yes (Hospitalization, Other)
  Sender: FDA-Public Use
  Company Number: US-PURACAP-US-2021EPCLIT01314

PATIENT
  Age: 49 Year
  Sex: Female

DRUGS (1)
  1. IBUPROFEN [Suspect]
     Active Substance: IBUPROFEN
     Indication: Product used for unknown indication
     Dosage: 3 SMALL TABLETS
     Route: 048

REACTIONS (3)
  - Foreign body in gastrointestinal tract [Recovered/Resolved]
  - Eosinophilic oesophagitis [Recovered/Resolved]
  - Oesophageal stenosis [Recovered/Resolved]
